FAERS Safety Report 9512590 (Version 1)
Quarter: 2013Q1

REPORT INFORMATION
  Report Type: Spontaneous
  Country: US (occurrence: None)
  Receive Date: 20130305
  Receipt Date: 20130305
  Transmission Date: 20140127
  Serious: Yes (Other)
  Sender: FDA-Public Use
  Company Number: 163-21880-12051342

PATIENT
  Age: 54 Year
  Sex: Male
  Weight: 81.65 kg

DRUGS (8)
  1. REVLIMID [Suspect]
     Indication: MYELODYSPLASTIC SYNDROME
     Dosage: DAILY X 21 DAYS
     Route: 048
     Dates: start: 201201
  2. ALPRAZOLAM (ALPRAZOLAM) (UNKNOWN) (ALPRAZOLAM) [Concomitant]
  3. ASPIRIN (ACETYLSALICYLIC ACID) (UNKNOWN) (ACETYLSALICYLIC ACID) [Concomitant]
  4. COUMADIN (WARFARIN SODIUM) (UNKNOWN) [Concomitant]
  5. METOPROLOL (METOPROLOL) (UNKNOWN) [Concomitant]
  6. OMEPRAZOLE (OMEPRAZOLE) (UNKNOWN) [Concomitant]
  7. VITAMIN C [Concomitant]
  8. VITAMIN D (ERGOCALCIFEROL) (UNKNOWN) [Concomitant]

REACTIONS (2)
  - Deep vein thrombosis [None]
  - Peroneal nerve palsy [None]
